FAERS Safety Report 24562405 (Version 2)
Quarter: 2024Q4

REPORT INFORMATION
  Report Type: Spontaneous
  Country: DE (occurrence: DE)
  Receive Date: 20241029
  Receipt Date: 20241121
  Transmission Date: 20250114
  Serious: Yes (Hospitalization, Other)
  Sender: MERCK
  Company Number: DE-009507513-2410DEU012057

PATIENT
  Age: 73 Year
  Sex: Male
  Weight: 78 kg

DRUGS (2)
  1. KEYTRUDA [Suspect]
     Active Substance: PEMBROLIZUMAB
     Indication: Transitional cell carcinoma metastatic
     Dosage: 200 MILLIGRAM, Q3W
     Dates: start: 20240918
  2. ENFORTUMAB VEDOTIN [Suspect]
     Active Substance: ENFORTUMAB VEDOTIN
     Indication: Transitional cell carcinoma metastatic
     Dosage: 1.25 MILLIGRAM/KILOGRAM
     Route: 042
     Dates: start: 20240918

REACTIONS (13)
  - Thrombosis [Recovering/Resolving]
  - Malignant neoplasm progression [Unknown]
  - Arteriosclerosis coronary artery [Unknown]
  - Renal impairment [Unknown]
  - Pulmonary arteriopathy [Unknown]
  - Pulmonary hypertension [Unknown]
  - Right ventricular failure [Unknown]
  - Mitral valve incompetence [Unknown]
  - Pulmonary valve incompetence [Unknown]
  - Osteosclerosis [Unknown]
  - Lymphadenopathy [Unknown]
  - Enterobacter test positive [Unknown]
  - Ill-defined disorder [Unknown]

NARRATIVE: CASE EVENT DATE: 20240101
